FAERS Safety Report 5788468-X (Version None)
Quarter: 2008Q2

REPORT INFORMATION
  Report Type: 
  Country: None (occurrence: None)
  Receive Date: 20080623
  Receipt Date: 20080609
  Transmission Date: 20081010
  Serious: Yes (Hospitalization)
  Sender: FDA-Public Use
  Company Number: 2008AL006618

PATIENT
  Age: 84 Year
  Sex: Male
  Weight: 92.9874 kg

DRUGS (15)
  1. DIGOXIN [Suspect]
     Indication: ARRHYTHMIA
     Dosage: 0.125MG, QD, PO
     Route: 048
     Dates: start: 20010101, end: 20071007
  2. METOPROLOL SUCCINATE [Suspect]
     Dates: start: 20071007
  3. METOPROLOL SUCCINATE [Concomitant]
  4. ALLOPURINOL [Concomitant]
  5. AVODART [Concomitant]
  6. DIOVAN [Concomitant]
  7. LASIX [Concomitant]
  8. KLONOPIN [Concomitant]
  9. PLAVIX [Concomitant]
  10. PREVACID [Concomitant]
  11. SPIRONOLACTONE [Concomitant]
  12. CALCIUM [Concomitant]
  13. VITAMIN B-12 [Concomitant]
  14. MULTI-VITAMIN [Concomitant]
  15. B6 [Concomitant]

REACTIONS (5)
  - BLOOD PRESSURE DECREASED [None]
  - BODY TEMPERATURE DECREASED [None]
  - DEPRESSED LEVEL OF CONSCIOUSNESS [None]
  - HEART RATE DECREASED [None]
  - PO2 DECREASED [None]
